FAERS Safety Report 19202668 (Version 1)
Quarter: 2021Q2

REPORT INFORMATION
  Report Type: Spontaneous
  Country: CN (occurrence: CN)
  Receive Date: 20210502
  Receipt Date: 20210502
  Transmission Date: 20210717
  Serious: Yes (Hospitalization)
  Sender: FDA-Public Use
  Company Number: CN-009507513-2104CHN007334

PATIENT
  Age: 6 Year
  Sex: Female
  Weight: 18.5 kg

DRUGS (9)
  1. IMIPENEM AND CILASTATIN [Suspect]
     Active Substance: CILASTATIN SODIUM\IMIPENEM
     Indication: INFECTION
     Dosage: UNK
     Route: 042
  2. ALBUMIN HUMAN [Concomitant]
     Active Substance: ALBUMIN HUMAN
     Indication: ROUTINE HEALTH MAINTENANCE
  3. VANCOMYCIN [Concomitant]
     Active Substance: VANCOMYCIN
     Indication: INFECTION
     Dosage: UNK
     Route: 048
  4. GLOBULIN, IMMUNE [Concomitant]
     Active Substance: HUMAN IMMUNOGLOBULIN G
     Indication: NUTRITIONAL SUPPLEMENTATION
  5. DIGOXIN. [Concomitant]
     Active Substance: DIGOXIN
     Indication: CARDIAC DISORDER
  6. DOBUTAMINE [Concomitant]
     Active Substance: DOBUTAMINE HYDROCHLORIDE
     Indication: CARDIAC DISORDER
  7. GLOBULIN, IMMUNE [Concomitant]
     Active Substance: HUMAN IMMUNOGLOBULIN G
     Indication: ANTIDIARRHOEAL SUPPORTIVE CARE
  8. GLOBULIN, IMMUNE [Concomitant]
     Active Substance: HUMAN IMMUNOGLOBULIN G
     Indication: IMMUNE ENHANCEMENT THERAPY
  9. CASPOFUNGIN ACETATE. [Concomitant]
     Active Substance: CASPOFUNGIN ACETATE
     Indication: INFECTION
     Dosage: UNK

REACTIONS (1)
  - Drug ineffective [Unknown]
